FAERS Safety Report 15228785 (Version 1)
Quarter: 2018Q3

REPORT INFORMATION
  Report Type: Spontaneous
  Country: US (occurrence: US)
  Receive Date: 20180801
  Receipt Date: 20180801
  Transmission Date: 20181010
  Serious: Yes (Other)
  Sender: FDA-Public Use
  Company Number: US-FRESENIUS KABI-FK201808370

PATIENT
  Age: 61 Year
  Sex: Female

DRUGS (1)
  1. MOXIFLOXACIN (MANUFACTURER UNKNOWN) [Suspect]
     Active Substance: MOXIFLOXACIN
     Indication: INFLUENZA LIKE ILLNESS
     Route: 065

REACTIONS (6)
  - Multiple organ dysfunction syndrome [Unknown]
  - Stress cardiomyopathy [Recovered/Resolved]
  - Acute kidney injury [Unknown]
  - Toxic epidermal necrolysis [Recovered/Resolved]
  - Haemoptysis [Unknown]
  - Stevens-Johnson syndrome [Recovered/Resolved]
